FAERS Safety Report 18900717 (Version 2)
Quarter: 2021Q2

REPORT INFORMATION
  Report Type: Report from Study
  Country: BR (occurrence: BR)
  Receive Date: 20210216
  Receipt Date: 20210412
  Transmission Date: 20210717
  Serious: Yes (Disabling, Other)
  Sender: FDA-Public Use
  Company Number: NVSC2020BR254611

PATIENT
  Sex: Female

DRUGS (2)
  1. DUO TRAVATAN [Suspect]
     Active Substance: TIMOLOL MALEATE\TRAVOPROST
     Indication: PRODUCT USED FOR UNKNOWN INDICATION
     Dosage: UNK (10 YEARS AGO)
     Route: 065
  2. TRAVATAN [Suspect]
     Active Substance: TRAVOPROST
     Indication: PRODUCT USED FOR UNKNOWN INDICATION
     Dosage: UNK (3 MONTH AGO)
     Route: 065

REACTIONS (7)
  - Vision blurred [Not Recovered/Not Resolved]
  - Eye pain [Unknown]
  - Blindness unilateral [Not Recovered/Not Resolved]
  - Intraocular pressure decreased [Unknown]
  - Cataract [Unknown]
  - Product dispensing error [Unknown]
  - Eye swelling [Unknown]
